FAERS Safety Report 8507729-4 (Version None)
Quarter: 2012Q3

REPORT INFORMATION
  Report Type: 
  Country: None (occurrence: None)
  Receive Date: 20120709
  Receipt Date: 20120709
  Transmission Date: 20120928
  Serious: Yes (Other)
  Sender: FDA-Public Use
  Company Number: None

PATIENT
  Sex: Female

DRUGS (1)
  1. SPRYCEL [Suspect]
     Indication: LEUKAEMIA
     Dosage: 100 MG DAILY BY MOUTH
     Route: 048
     Dates: start: 20120620, end: 20120628

REACTIONS (3)
  - HEADACHE [None]
  - BLISTER [None]
  - EYE DISORDER [None]
